FAERS Safety Report 7386132-7 (Version None)
Quarter: 2011Q1

REPORT INFORMATION
  Report Type: 
  Country: None (occurrence: None)
  Receive Date: 20110331
  Receipt Date: 20110303
  Transmission Date: 20110831
  Serious: Yes (Hospitalization, Other)
  Sender: FDA-Public Use
  Company Number: US-BAYER-201022655NA

PATIENT
  Sex: Female
  Weight: 83.447 kg

DRUGS (4)
  1. BETAMETHASONE [Concomitant]
     Dosage: 0.5 %, UNK
     Route: 061
  2. NSAID'S [Concomitant]
  3. YASMIN [Suspect]
     Indication: PREMENSTRUAL SYNDROME
     Dates: start: 20080101, end: 20080201
  4. ANTIBIOTICS [Concomitant]

REACTIONS (2)
  - PULMONARY EMBOLISM [None]
  - PAIN [None]
